FAERS Safety Report 6935938-4 (Version None)
Quarter: 2010Q3

REPORT INFORMATION
  Report Type: 
  Country: None (occurrence: None)
  Receive Date: 20100819
  Receipt Date: 20100819
  Transmission Date: 20110219
  Serious: No
  Sender: FDA-Public Use
  Company Number: None

PATIENT
  Age: 66 Year
  Sex: Male
  Weight: 91 kg

DRUGS (1)
  1. VANCOMYCIN [Suspect]
     Dosage: 0.75 GM BID IV
     Route: 042
     Dates: start: 20100726, end: 20100808

REACTIONS (2)
  - LINEAR IGA DISEASE [None]
  - RASH [None]
